FAERS Safety Report 6227975-2 (Version None)
Quarter: 2009Q2

REPORT INFORMATION
  Report Type: 
  Country: None (occurrence: None)
  Receive Date: 20090611
  Receipt Date: 20090605
  Transmission Date: 20091009
  Serious: Yes (Other)
  Sender: FDA-Public Use
  Company Number: US-GENENTECH-283339

PATIENT
  Sex: Male
  Weight: 40.816 kg

DRUGS (3)
  1. XOLAIR [Suspect]
     Indication: ASTHMA
     Dosage: 300 MG, Q2W
     Route: 058
     Dates: start: 20081212
  2. XOLAIR [Suspect]
     Indication: RHINITIS ALLERGIC
  3. BENADRYL [Suspect]

REACTIONS (1)
  - URTICARIA [None]
